FAERS Safety Report 19164271 (Version 1)
Quarter: 2021Q2

REPORT INFORMATION
  Report Type: Other
  Country: US (occurrence: US)
  Receive Date: 20210421
  Receipt Date: 20210421
  Transmission Date: 20210717
  Serious: Yes (Other)
  Sender: FDA-Public Use
  Company Number: US-ALKERMES INC.-ALK-2020-001928

PATIENT
  Age: 64 Year
  Sex: Female
  Weight: 81.18 kg

DRUGS (1)
  1. VIVITROL [Suspect]
     Active Substance: NALTREXONE
     Indication: ALCOHOLISM
     Dosage: 380 MILLIGRAM, QMO
     Route: 030
     Dates: start: 20200304, end: 20200304

REACTIONS (3)
  - Adverse drug reaction [Unknown]
  - Injection site reaction [Unknown]
  - Injection site mass [Unknown]

NARRATIVE: CASE EVENT DATE: 20200311
